FAERS Safety Report 5139344-7 (Version None)
Quarter: 2006Q4

REPORT INFORMATION
  Report Type: 
  Country: None (occurrence: None)
  Receive Date: 20061024
  Receipt Date: 20061012
  Transmission Date: 20070319
  Serious: Yes (Hospitalization)
  Sender: FDA-Public Use
  Company Number: 2006-148683-NL

PATIENT
  Age: 67 Year
  Sex: Female

DRUGS (7)
  1. DEXAMETHASONE TAB [Suspect]
     Indication: PREMEDICATION
     Dosage: 20 MG ORAL, TWICE
  2. DEXAMETHASONE TAB [Suspect]
     Indication: PREMEDICATION
     Dosage: 20 MG INTRAVENOUS (NOS)
     Route: 042
  3. DEXAMETHASONE TAB [Suspect]
     Indication: PREMEDICATION
     Dosage: 10 MG ORAL, FOR CYCLE 7
     Route: 048
  4. PEGFILGRASTIM [Suspect]
     Indication: INFECTION PROPHYLAXIS
     Dosage: 6 MG DAILY, SUBCUTANEOUS; DAY 2 OF CYCLE
  5. PACLITAXEL [Suspect]
     Indication: BREAST CANCER
     Dosage: NI, FOR FOUR CYCLES (CYCLES 5-8)
  6. DOXORUBICIN HCL [Concomitant]
  7. CYCLOPHOSPHAMIDE [Concomitant]

REACTIONS (2)
  - DYSPNOEA [None]
  - WHITE BLOOD CELL COUNT INCREASED [None]
